FAERS Safety Report 9310705 (Version 2)
Quarter: 2013Q2

REPORT INFORMATION
  Report Type: Report from Study
  Country: BE (occurrence: BE)
  Receive Date: 20130527
  Receipt Date: 20130607
  Transmission Date: 20140414
  Serious: Yes (Death, Hospitalization, Other)
  Sender: FDA-Public Use
  Company Number: BE-INCYTE CORPORATION-2013IN001014

PATIENT
  Age: 89 Year
  Sex: Male
  Weight: 72 kg

DRUGS (9)
  1. INC424 [Suspect]
     Indication: MYELOFIBROSIS
     Dosage: 15 MG, BID
     Route: 048
     Dates: start: 20120405
  2. ISOTEN [Concomitant]
     Dosage: UNK
     Dates: start: 20120405, end: 20130514
  3. COVERSYL [Concomitant]
     Dosage: UNK
     Dates: start: 20120419
  4. ASAFLOW [Concomitant]
     Dosage: UNK
     Dates: start: 20120405, end: 20130514
  5. REMERGON [Concomitant]
     Dosage: UNK
     Dates: start: 20120419, end: 20130514
  6. LASIX [Concomitant]
     Dosage: UNK
  7. ZESTRIL [Concomitant]
     Dosage: UNK
     Dates: end: 20130514
  8. ALDACTONE [Concomitant]
     Dosage: UNK
     Dates: end: 20130514
  9. D-CURE [Concomitant]
     Dosage: UNK
     Dates: end: 20130514

REACTIONS (4)
  - Anaemia [Fatal]
  - Tricuspid valve incompetence [Not Recovered/Not Resolved]
  - Pulmonary hypertension [Not Recovered/Not Resolved]
  - Dyspnoea [Not Recovered/Not Resolved]
